FAERS Safety Report 24268376 (Version 1)
Quarter: 2024Q3

REPORT INFORMATION
  Report Type: Spontaneous
  Country: CH (occurrence: CH)
  Receive Date: 20240830
  Receipt Date: 20240830
  Transmission Date: 20241016
  Serious: Yes (Death, Life-Threatening, Other)
  Sender: Waylis
  Company Number: None

PATIENT
  Age: 22 Year
  Sex: Male
  Weight: 80 kg

DRUGS (10)
  1. VALIUM [Interacting]
     Active Substance: DIAZEPAM
     Indication: Product used for unknown indication
     Route: 048
     Dates: start: 20231212, end: 20231219
  2. VALIUM [Interacting]
     Active Substance: DIAZEPAM
     Route: 048
     Dates: start: 20231128, end: 20231206
  3. VALIUM [Interacting]
     Active Substance: DIAZEPAM
     Route: 048
     Dates: start: 20231116, end: 20231123
  4. DOLOPHINE [Interacting]
     Active Substance: METHADONE HYDROCHLORIDE
     Indication: Drug dependence
     Dosage: 10 MG METHADON PER ML
     Route: 048
     Dates: start: 20231212, end: 20231219
  5. DOLOPHINE [Interacting]
     Active Substance: METHADONE HYDROCHLORIDE
     Indication: Drug dependence
     Dosage: 10 MG METHADON PER ML
     Route: 048
     Dates: start: 20231128, end: 20231206
  6. DOLOPHINE [Interacting]
     Active Substance: METHADONE HYDROCHLORIDE
     Indication: Drug dependence
     Dosage: 10 MG METHADON PER ML
     Route: 048
     Dates: start: 20231116, end: 20231123
  7. ZYPREXA [Interacting]
     Active Substance: OLANZAPINE
     Indication: Product used for unknown indication
     Route: 048
     Dates: start: 20231212, end: 20231219
  8. ZYPREXA [Interacting]
     Active Substance: OLANZAPINE
     Route: 048
     Dates: start: 20231128, end: 20231206
  9. ZYPREXA [Interacting]
     Active Substance: OLANZAPINE
     Route: 048
     Dates: start: 20231116, end: 20231123
  10. SODIUM PICOSULFATE [Concomitant]
     Active Substance: SODIUM PICOSULFATE
     Indication: Constipation
     Dosage: 10-20 DROPS 1X/DAY (1 {DF})
     Route: 048
     Dates: start: 20231211, end: 20231217

REACTIONS (3)
  - Death [Fatal]
  - Pulmonary oedema [Fatal]
  - Brain oedema [Fatal]

NARRATIVE: CASE EVENT DATE: 20231201
